FAERS Safety Report 21676503 (Version 1)
Quarter: 2022Q4

REPORT INFORMATION
  Report Type: Spontaneous
  Country: FR (occurrence: FR)
  Receive Date: 20221202
  Receipt Date: 20221202
  Transmission Date: 20230112
  Serious: Yes (Hospitalization)
  Sender: FDA-Public Use
  Company Number: None

PATIENT
  Age: 68 Year
  Sex: Female
  Weight: 52 kg

DRUGS (8)
  1. LINEZOLID [Suspect]
     Active Substance: LINEZOLID
     Indication: Infection
     Dosage: 1200 MILLIGRAM DAILY; 600MG TWICE DAILY FOR 4 WEEKS, DURATION : 27 DAYS
     Dates: start: 20221005, end: 20221101
  2. PIPERACILLIN SODIUM\TAZOBACTAM SODIUM [Suspect]
     Active Substance: PIPERACILLIN SODIUM\TAZOBACTAM SODIUM
     Indication: Infection
     Dosage: 12 GRAM DAILY; 4G 3 TIMES A DAY FOR 6 WEEKS, PIPERACILLIN TAZOBACTAM KABI 4 G/500 MG, POWDER FOR SOL
     Dates: start: 20221005, end: 20221102
  3. FLUCONAZOLE [Suspect]
     Active Substance: FLUCONAZOLE
     Indication: Oral fungal infection
     Dosage: 200 MILLIGRAM DAILY; 400MG ONCE THEN 200MG ONCE A DAY FOR 13 DAYS, STRENGTH : 200 MG, UNIT DOSE: 200
     Dates: start: 20221020, end: 20221030
  4. OZEMPIC [Concomitant]
     Active Substance: SEMAGLUTIDE
     Indication: Product used for unknown indication
     Dosage: UNIT DOSE : 0.5 MG, STRENGTH : 0.5 MG, FREQUENCY TIME : 1 WEEK
  5. METFORMIN HYDROCHLORIDE [Concomitant]
     Active Substance: METFORMIN HYDROCHLORIDE
     Indication: Type 2 diabetes mellitus
     Dosage: UNIT DOSE : 850 MG, FREQUENCY TIME : 12 HOURS
  6. TWYNSTA [Concomitant]
     Active Substance: AMLODIPINE BESYLATE\TELMISARTAN
     Indication: Hypertension
     Dosage: TWYNSTA 80MG/5MG
  7. HYDROCHLOROTHIAZIDE\NEBIVOLOL HYDROCHLORIDE [Concomitant]
     Active Substance: HYDROCHLOROTHIAZIDE\NEBIVOLOL HYDROCHLORIDE
     Indication: Hypertension
     Dosage: CONEBILOX 5 MG/25 MG
  8. CRESTOR [Concomitant]
     Active Substance: ROSUVASTATIN CALCIUM
     Indication: Dyslipidaemia
     Dosage: STRENGTH : 10 MG, UNIT DOSE : 10 MG, FREQUENCY TIME : 1 DAY

REACTIONS (1)
  - Haemophagocytic lymphohistiocytosis [Recovering/Resolving]

NARRATIVE: CASE EVENT DATE: 20221102
